FAERS Safety Report 6304485-5 (Version None)
Quarter: 2009Q3

REPORT INFORMATION
  Report Type: 
  Country: None (occurrence: None)
  Receive Date: 20090811
  Receipt Date: 20090730
  Transmission Date: 20100115
  Serious: Yes (Other)
  Sender: FDA-Public Use
  Company Number: GB-ROCHE-640602

PATIENT
  Sex: Female

DRUGS (6)
  1. MIRCERA [Suspect]
     Indication: DRUG USE FOR UNKNOWN INDICATION
     Route: 058
     Dates: start: 20090601, end: 20090625
  2. SIMVASTATIN [Concomitant]
     Dosage: TAKEN AT NIGHT
     Route: 048
     Dates: start: 20080821
  3. GLICLAZIDE [Concomitant]
     Route: 048
     Dates: start: 20081021
  4. PREDNISOLONE [Concomitant]
     Dosage: TAKEN IN THE MORNING
     Route: 048
     Dates: start: 20081113
  5. MYCOPHENOLATE MOFETIL [Concomitant]
     Route: 048
     Dates: start: 20050912
  6. ASPIRIN [Concomitant]
     Route: 048
     Dates: start: 20040809

REACTIONS (3)
  - DISTURBANCE IN ATTENTION [None]
  - DIZZINESS [None]
  - NAUSEA [None]
